FAERS Safety Report 8604422-4 (Version None)
Quarter: 2012Q3

REPORT INFORMATION
  Report Type: 
  Country: None (occurrence: None)
  Receive Date: 20120820
  Receipt Date: 20120810
  Transmission Date: 20120928
  Serious: Yes (Hospitalization, Other)
  Sender: FDA-Public Use
  Company Number: BR-JNJFOC-20120715309

PATIENT
  Sex: Female
  Weight: 75 kg

DRUGS (5)
  1. REMICADE [Suspect]
     Dosage: AFTER 15 DAYS SECOND DOSE OF INFLIXIMAB WAS RECEIVED
     Route: 042
     Dates: start: 20120720
  2. REMICADE [Suspect]
     Indication: PSORIATIC ARTHROPATHY
     Route: 042
  3. REMICADE [Suspect]
     Route: 042
     Dates: start: 20120705
  4. LEVOTHYROXINE SODIUM [Concomitant]
     Indication: HYPOTHYROIDISM
     Route: 065
  5. LEVOTHYROXINE SODIUM [Concomitant]
     Indication: THYROXINE DECREASED
     Route: 065

REACTIONS (5)
  - GASTROINTESTINAL INFECTION [None]
  - DECREASED IMMUNE RESPONSIVENESS [None]
  - DEHYDRATION [None]
  - PYREXIA [None]
  - DIZZINESS [None]
